FAERS Safety Report 26011565 (Version 1)
Quarter: 2025Q4

REPORT INFORMATION
  Report Type: Spontaneous
  Country: GB (occurrence: GB)
  Receive Date: 20251107
  Receipt Date: 20251107
  Transmission Date: 20260117
  Serious: Yes (Other)
  Sender: MYLAN
  Company Number: GB-MHRA-TPP12199361C11456575YC1762171151574

PATIENT
  Age: 56 Year
  Sex: Female
  Weight: 70 kg

DRUGS (24)
  1. ATORVASTATIN [Suspect]
     Active Substance: ATORVASTATIN
     Indication: Ill-defined disorder
     Dosage: 20 MILLIGRAM, QD
     Dates: start: 20250929
  2. ATORVASTATIN [Suspect]
     Active Substance: ATORVASTATIN
     Dosage: 20 MILLIGRAM, QD
     Route: 065
     Dates: start: 20250929
  3. ATORVASTATIN [Suspect]
     Active Substance: ATORVASTATIN
     Dosage: 20 MILLIGRAM, QD
     Route: 065
     Dates: start: 20250929
  4. ATORVASTATIN [Suspect]
     Active Substance: ATORVASTATIN
     Dosage: 20 MILLIGRAM, QD
     Dates: start: 20250929
  5. DEXAMETHASONE [Concomitant]
     Active Substance: DEXAMETHASONE
     Indication: Ill-defined disorder
     Dosage: UNK UNK, TID
     Dates: start: 20250905, end: 20250910
  6. DEXAMETHASONE [Concomitant]
     Active Substance: DEXAMETHASONE
     Dosage: UNK UNK, TID
     Route: 065
     Dates: start: 20250905, end: 20250910
  7. DEXAMETHASONE [Concomitant]
     Active Substance: DEXAMETHASONE
     Dosage: UNK UNK, TID
     Route: 065
     Dates: start: 20250905, end: 20250910
  8. DEXAMETHASONE [Concomitant]
     Active Substance: DEXAMETHASONE
     Dosage: UNK UNK, TID
     Dates: start: 20250905, end: 20250910
  9. BUTYLSCOPOLAMINE BROMIDE [Concomitant]
     Active Substance: BUTYLSCOPOLAMINE BROMIDE
     Indication: Ill-defined disorder
     Dosage: 2 DOSAGE FORM, Q6H (TAKE TWO 4 TIMES/DAY WHEN REQUIRED)
     Dates: start: 20250929, end: 20251013
  10. BUTYLSCOPOLAMINE BROMIDE [Concomitant]
     Active Substance: BUTYLSCOPOLAMINE BROMIDE
     Dosage: 2 DOSAGE FORM, Q6H (TAKE TWO 4 TIMES/DAY WHEN REQUIRED)
     Route: 065
     Dates: start: 20250929, end: 20251013
  11. BUTYLSCOPOLAMINE BROMIDE [Concomitant]
     Active Substance: BUTYLSCOPOLAMINE BROMIDE
     Dosage: 2 DOSAGE FORM, Q6H (TAKE TWO 4 TIMES/DAY WHEN REQUIRED)
     Route: 065
     Dates: start: 20250929, end: 20251013
  12. BUTYLSCOPOLAMINE BROMIDE [Concomitant]
     Active Substance: BUTYLSCOPOLAMINE BROMIDE
     Dosage: 2 DOSAGE FORM, Q6H (TAKE TWO 4 TIMES/DAY WHEN REQUIRED)
     Dates: start: 20250929, end: 20251013
  13. LACTULOSE [Concomitant]
     Active Substance: LACTULOSE
     Indication: Ill-defined disorder
     Dosage: 15 MILLILITER, BID (15ML TWICE DAILY)
     Dates: start: 20250929, end: 20251009
  14. LACTULOSE [Concomitant]
     Active Substance: LACTULOSE
     Dosage: 15 MILLILITER, BID (15ML TWICE DAILY)
     Route: 065
     Dates: start: 20250929, end: 20251009
  15. LACTULOSE [Concomitant]
     Active Substance: LACTULOSE
     Dosage: 15 MILLILITER, BID (15ML TWICE DAILY)
     Route: 065
     Dates: start: 20250929, end: 20251009
  16. LACTULOSE [Concomitant]
     Active Substance: LACTULOSE
     Dosage: 15 MILLILITER, BID (15ML TWICE DAILY)
     Dates: start: 20250929, end: 20251009
  17. GABAPENTIN [Concomitant]
     Active Substance: GABAPENTIN
     Indication: Ill-defined disorder
     Dosage: 3 DOSAGE FORM, QD (TAKE ONE AT MORNING, LUNCHTIME AND 2 AT NIGHTTI...)
     Dates: start: 20250212
  18. GABAPENTIN [Concomitant]
     Active Substance: GABAPENTIN
     Dosage: 3 DOSAGE FORM, QD (TAKE ONE AT MORNING, LUNCHTIME AND 2 AT NIGHTTI...)
     Route: 065
     Dates: start: 20250212
  19. GABAPENTIN [Concomitant]
     Active Substance: GABAPENTIN
     Dosage: 3 DOSAGE FORM, QD (TAKE ONE AT MORNING, LUNCHTIME AND 2 AT NIGHTTI...)
     Route: 065
     Dates: start: 20250212
  20. GABAPENTIN [Concomitant]
     Active Substance: GABAPENTIN
     Dosage: 3 DOSAGE FORM, QD (TAKE ONE AT MORNING, LUNCHTIME AND 2 AT NIGHTTI...)
     Dates: start: 20250212
  21. CITALOPRAM [Concomitant]
     Active Substance: CITALOPRAM
     Indication: Ill-defined disorder
     Dosage: 1 DOSAGE FORM, QD
     Dates: start: 20250319
  22. CITALOPRAM [Concomitant]
     Active Substance: CITALOPRAM
     Dosage: 1 DOSAGE FORM, QD
     Route: 065
     Dates: start: 20250319
  23. CITALOPRAM [Concomitant]
     Active Substance: CITALOPRAM
     Dosage: 1 DOSAGE FORM, QD
     Route: 065
     Dates: start: 20250319
  24. CITALOPRAM [Concomitant]
     Active Substance: CITALOPRAM
     Dosage: 1 DOSAGE FORM, QD
     Dates: start: 20250319

REACTIONS (4)
  - Nausea [Recovering/Resolving]
  - Diarrhoea [Unknown]
  - Vomiting [Unknown]
  - Fatigue [Unknown]
